FAERS Safety Report 11499757 (Version 2)
Quarter: 2015Q3

REPORT INFORMATION
  Report Type: Spontaneous
  Country: BR (occurrence: BR)
  Receive Date: 20150914
  Receipt Date: 20150921
  Transmission Date: 20151125
  Serious: Yes (Other)
  Sender: FDA-Public Use
  Company Number: BR-ASTRAZENECA-2015SE87321

PATIENT
  Age: 588 Month
  Sex: Female
  Weight: 135 kg

DRUGS (8)
  1. ENBREL [Concomitant]
     Active Substance: ETANERCEPT
     Indication: ANKYLOSING SPONDYLITIS
     Dosage: ONCE A WEEK
     Dates: start: 2009
  2. OMEPRAZOLE. [Suspect]
     Active Substance: OMEPRAZOLE
     Indication: GASTRITIS
     Route: 048
     Dates: start: 2010
  3. KOMBIGLYZE XR [Suspect]
     Active Substance: METFORMIN HYDROCHLORIDE\SAXAGLIPTIN HYDROCHLORIDE
     Indication: TYPE 2 DIABETES MELLITUS
     Dosage: 5 MG + 1000 MG, DAILY
     Route: 048
     Dates: start: 20150905
  4. LACTULONA [Concomitant]
     Indication: HYPERTENSION
     Dosage: DAILY
  5. PURAN [Concomitant]
     Active Substance: LEVOTHYROXINE SODIUM
     Route: 048
     Dates: start: 2010
  6. OLMETEC [Suspect]
     Active Substance: OLMESARTAN MEDOXOMIL
     Indication: HYPERTENSION
     Dosage: 20/12.5 MG DAILY
     Route: 048
     Dates: start: 2010
  7. SIMVASTATIN. [Concomitant]
     Active Substance: SIMVASTATIN
     Indication: BLOOD CHOLESTEROL INCREASED
     Dosage: TWO TIMES A DAY
     Route: 048
     Dates: start: 2010
  8. DAIDZEIN [Concomitant]
     Indication: POSTMENOPAUSE
     Dates: start: 201305

REACTIONS (5)
  - Asthenia [Not Recovered/Not Resolved]
  - Vitamin D deficiency [Unknown]
  - Type 2 diabetes mellitus [Unknown]
  - Abdominal pain upper [Not Recovered/Not Resolved]
  - Fatigue [Not Recovered/Not Resolved]

NARRATIVE: CASE EVENT DATE: 201504
